FAERS Safety Report 11527030 (Version 1)
Quarter: 2015Q3

REPORT INFORMATION
  Report Type: Spontaneous
  Country: US (occurrence: US)
  Receive Date: 20150903
  Receipt Date: 20150903
  Transmission Date: 20151125
  Serious: No
  Sender: FDA-Public Use
  Company Number: US-ELI_LILLY_AND_COMPANY-US200909007080

PATIENT
  Age: 32 Year
  Sex: Female

DRUGS (3)
  1. HUMALOG [Suspect]
     Active Substance: INSULIN LISPRO
     Dosage: 3 U, UNK
     Dates: start: 20090930, end: 20090930
  2. LANTUS [Concomitant]
     Active Substance: INSULIN GLARGINE
  3. HUMALOG [Suspect]
     Active Substance: INSULIN LISPRO
     Dosage: 7 U, UNK
     Dates: start: 2006

REACTIONS (1)
  - Intentional device misuse [Recovered/Resolved]

NARRATIVE: CASE EVENT DATE: 20090930
